FAERS Safety Report 14542658 (Version 1)
Quarter: 2018Q1

REPORT INFORMATION
  Report Type: Spontaneous
  Country: US (occurrence: US)
  Receive Date: 20180216
  Receipt Date: 20180216
  Transmission Date: 20180509
  Serious: Yes (Hospitalization)
  Sender: FDA-Public Use
  Company Number: US-OTSUKA-DJ201306910

PATIENT
  Age: 23 Year
  Sex: Male
  Weight: 95.24 kg

DRUGS (3)
  1. ABILIFY [Suspect]
     Active Substance: ARIPIPRAZOLE
     Indication: DEPRESSION
  2. ZOLOFT [Concomitant]
     Active Substance: SERTRALINE HYDROCHLORIDE
     Indication: PRODUCT USED FOR UNKNOWN INDICATION
     Dosage: 100 MG, UNK
     Route: 065
  3. ABILIFY [Suspect]
     Active Substance: ARIPIPRAZOLE
     Indication: PSYCHOTIC DISORDER
     Dosage: 10 MG, UNK
     Route: 065

REACTIONS (6)
  - Constipation [Unknown]
  - Muscular weakness [Unknown]
  - Eyelid ptosis [Not Recovered/Not Resolved]
  - Hyporeflexia [Recovered/Resolved]
  - Urinary retention [Unknown]
  - Decreased appetite [Unknown]

NARRATIVE: CASE EVENT DATE: 2013
